FAERS Safety Report 9157695 (Version 1)
Quarter: 2013Q1

REPORT INFORMATION
  Report Type: Spontaneous
  Country: US (occurrence: US)
  Receive Date: 20130312
  Receipt Date: 20130312
  Transmission Date: 20140127
  Serious: Yes (Other)
  Sender: FDA-Public Use
  Company Number: US-009507513-1303USA004482

PATIENT
  Sex: Male

DRUGS (1)
  1. FELBATOL [Suspect]
     Dosage: 600 MG, BID
     Route: 048

REACTIONS (2)
  - Convulsion [Not Recovered/Not Resolved]
  - Dysphagia [Not Recovered/Not Resolved]
